FAERS Safety Report 5737831-1 (Version None)
Quarter: 2008Q2

REPORT INFORMATION
  Report Type: 
  Country: None (occurrence: None)
  Receive Date: 20080514
  Receipt Date: 20080505
  Transmission Date: 20081010
  Serious: Yes (Disabling)
  Sender: FDA-Public Use
  Company Number: US-MERCK-0804USA02703

PATIENT
  Age: 75 Year
  Sex: Male
  Weight: 117 kg

DRUGS (13)
  1. JANUVIA [Suspect]
     Indication: TYPE 2 DIABETES MELLITUS
     Route: 048
     Dates: start: 20070411
  2. JANUVIA [Suspect]
     Route: 048
     Dates: start: 20080501
  3. GLYBURIDE [Concomitant]
     Route: 065
  4. METFORMIN [Concomitant]
     Route: 065
  5. LISINOPRIL [Concomitant]
     Route: 048
  6. COREG [Concomitant]
     Route: 065
  7. NEXIUM [Concomitant]
     Route: 065
  8. PLAVIX [Concomitant]
     Route: 065
  9. ZETIA [Concomitant]
     Route: 048
  10. LEVOTHYROXINE SODIUM [Concomitant]
     Route: 065
  11. TERAZOSIN HYDROCHLORIDE [Concomitant]
     Route: 065
  12. ASPIRIN [Concomitant]
     Route: 065
  13. CHLORTHALIDONE [Concomitant]
     Route: 065

REACTIONS (3)
  - BLOOD GLUCOSE INCREASED [None]
  - HYPOAESTHESIA [None]
  - MUSCULAR WEAKNESS [None]
